FAERS Safety Report 23331791 (Version 1)
Quarter: 2023Q4

REPORT INFORMATION
  Report Type: Spontaneous
  Country: BR (occurrence: BR)
  Receive Date: 20231222
  Receipt Date: 20231222
  Transmission Date: 20240110
  Serious: Yes (Other)
  Sender: FDA-Public Use
  Company Number: BR-BAXTER-2023BAX036744

PATIENT
  Age: 52 Year
  Sex: Female

DRUGS (2)
  1. IRON [Suspect]
     Active Substance: IRON
     Indication: Anaemia
     Dosage: 200 MG VIA ENDOVENOUS ROUTE DILUTED IN 500 ML SALINE IN TWO HOURS, ONCE A WEEK FOR 3 WEEKS, 20 MG/ML
     Route: 042
  2. SODIUM CHLORIDE [Suspect]
     Active Substance: SODIUM CHLORIDE
     Indication: Medication dilution
     Dosage: 500 ML VIA ENDOVENOUS ROUTE FOR 2 HRS, USED TO DILUTE 200 MG OF SUCROFER, ONCE A WEEK FOR 3 WEEKS
     Route: 042

REACTIONS (5)
  - Erythema [Recovered/Resolved]
  - Oedema peripheral [Recovered/Resolved]
  - Headache [Recovered/Resolved]
  - Abdominal pain lower [Recovered/Resolved]
  - Urticaria [Recovered/Resolved]

NARRATIVE: CASE EVENT DATE: 20231116
